FAERS Safety Report 11135521 (Version 1)
Quarter: 2015Q2

REPORT INFORMATION
  Report Type: Spontaneous
  Country: US (occurrence: None)
  Receive Date: 20150522
  Receipt Date: 20150522
  Transmission Date: 20150821
  Serious: Yes (Life-Threatening, Hospitalization)
  Sender: FDA-Public Use
  Company Number: None

PATIENT
  Age: 56 Year
  Sex: Female

DRUGS (8)
  1. METFORMIN [Concomitant]
     Active Substance: METFORMIN HYDROCHLORIDE
  2. COGENTIN [Concomitant]
     Active Substance: BENZTROPINE MESYLATE
  3. LISINOPRIL. [Concomitant]
     Active Substance: LISINOPRIL
  4. ABILIFY [Concomitant]
     Active Substance: ARIPIPRAZOLE
  5. GRALISE [Suspect]
     Active Substance: GABAPENTIN
     Indication: RESTLESS LEGS SYNDROME
     Dosage: 3 PILLS PM, ONCE DAILY, TAKEN BY MOUTH
     Route: 048
     Dates: start: 20150407, end: 20150415
  6. MIRAPEX [Concomitant]
     Active Substance: PRAMIPEXOLE DIHYDROCHLORIDE
  7. CYMBALTA [Concomitant]
     Active Substance: DULOXETINE HYDROCHLORIDE
  8. KLONOPIN [Concomitant]
     Active Substance: CLONAZEPAM

REACTIONS (3)
  - Labelled drug-drug interaction medication error [None]
  - Drug prescribing error [None]
  - Toxicity to various agents [None]

NARRATIVE: CASE EVENT DATE: 20150507
